FAERS Safety Report 5390701-3 (Version None)
Quarter: 2007Q3

REPORT INFORMATION
  Report Type: 
  Country: None (occurrence: None)
  Receive Date: 20070716
  Receipt Date: 20070705
  Transmission Date: 20080115
  Serious: Yes (Hospitalization)
  Sender: FDA-Public Use
  Company Number: 2007-160261-NL

PATIENT
  Age: 23 Year
  Sex: Female

DRUGS (3)
  1. ETONOGESTREL [Suspect]
     Dosage: DF
     Dates: start: 20070529
  2. LYMECYCLINE [Concomitant]
  3. NARATRIPTAN [Concomitant]

REACTIONS (2)
  - GRAND MAL CONVULSION [None]
  - SPINAL FRACTURE [None]
